FAERS Safety Report 19570106 (Version 8)
Quarter: 2024Q1

REPORT INFORMATION
  Report Type: Report from Study
  Country: FR (occurrence: FR)
  Receive Date: 20210716
  Receipt Date: 20240301
  Transmission Date: 20240409
  Serious: Yes (Hospitalization, Other)
  Sender: FDA-Public Use
  Company Number: FR-TAKEDA-2021TUS042996

PATIENT
  Age: 19 Year
  Sex: Male
  Weight: 54 kg

DRUGS (21)
  1. TEDUGLUTIDE [Suspect]
     Active Substance: TEDUGLUTIDE
     Indication: Short-bowel syndrome
     Dosage: 2.69 MILLIGRAM, QD
     Route: 042
     Dates: start: 20181109, end: 20190201
  2. TEDUGLUTIDE [Suspect]
     Active Substance: TEDUGLUTIDE
     Indication: Short-bowel syndrome
     Dosage: 2.69 MILLIGRAM, QD
     Route: 042
     Dates: start: 20181109, end: 20190201
  3. TEDUGLUTIDE [Suspect]
     Active Substance: TEDUGLUTIDE
     Indication: Short-bowel syndrome
     Dosage: 2.69 MILLIGRAM, QD
     Route: 042
     Dates: start: 20181109, end: 20190201
  4. TEDUGLUTIDE [Suspect]
     Active Substance: TEDUGLUTIDE
     Indication: Short-bowel syndrome
     Dosage: 2.69 MILLIGRAM, QD
     Route: 042
     Dates: start: 20181109, end: 20190201
  5. TEDUGLUTIDE [Suspect]
     Active Substance: TEDUGLUTIDE
     Dosage: 2.795 MILLIGRAM, QD
     Route: 042
     Dates: start: 20190201, end: 20200325
  6. TEDUGLUTIDE [Suspect]
     Active Substance: TEDUGLUTIDE
     Dosage: 2.795 MILLIGRAM, QD
     Route: 042
     Dates: start: 20190201, end: 20200325
  7. TEDUGLUTIDE [Suspect]
     Active Substance: TEDUGLUTIDE
     Dosage: 2.795 MILLIGRAM, QD
     Route: 042
     Dates: start: 20190201, end: 20200325
  8. TEDUGLUTIDE [Suspect]
     Active Substance: TEDUGLUTIDE
     Dosage: 2.795 MILLIGRAM, QD
     Route: 042
     Dates: start: 20190201, end: 20200325
  9. TEDUGLUTIDE [Suspect]
     Active Substance: TEDUGLUTIDE
     Dosage: 2.69 MILLIGRAM, QD
     Route: 042
     Dates: start: 20200326, end: 20200929
  10. TEDUGLUTIDE [Suspect]
     Active Substance: TEDUGLUTIDE
     Dosage: 2.69 MILLIGRAM, QD
     Route: 042
     Dates: start: 20200326, end: 20200929
  11. TEDUGLUTIDE [Suspect]
     Active Substance: TEDUGLUTIDE
     Dosage: 2.69 MILLIGRAM, QD
     Route: 042
     Dates: start: 20200326, end: 20200929
  12. TEDUGLUTIDE [Suspect]
     Active Substance: TEDUGLUTIDE
     Dosage: 2.69 MILLIGRAM, QD
     Route: 042
     Dates: start: 20200326, end: 20200929
  13. TEDUGLUTIDE [Suspect]
     Active Substance: TEDUGLUTIDE
     Dosage: 2.65 MILLIGRAM, QD
     Route: 042
     Dates: start: 20200929
  14. TEDUGLUTIDE [Suspect]
     Active Substance: TEDUGLUTIDE
     Dosage: 2.65 MILLIGRAM, QD
     Route: 042
     Dates: start: 20200929
  15. TEDUGLUTIDE [Suspect]
     Active Substance: TEDUGLUTIDE
     Dosage: 2.65 MILLIGRAM, QD
     Route: 042
     Dates: start: 20200929
  16. TEDUGLUTIDE [Suspect]
     Active Substance: TEDUGLUTIDE
     Dosage: 2.65 MILLIGRAM, QD
     Route: 042
     Dates: start: 20200929
  17. ESOMEPRAZOLE [Concomitant]
     Active Substance: ESOMEPRAZOLE
     Indication: Abdominal pain
     Dosage: 20 MILLIGRAM, QD
     Route: 048
     Dates: start: 2016, end: 20211103
  18. ESOMEPRAZOLE [Concomitant]
     Active Substance: ESOMEPRAZOLE
     Dosage: 40 MILLIGRAM, QD
     Route: 048
     Dates: start: 20211103
  19. URSODIOL [Concomitant]
     Active Substance: URSODIOL
     Indication: Abdominal pain
     Dosage: 250 MILLIGRAM, QD
     Route: 048
     Dates: start: 2016
  20. URSODIOL [Concomitant]
     Active Substance: URSODIOL
     Dosage: 500 MILLIGRAM, TID
     Route: 048
     Dates: start: 20211103
  21. CHOLECALCIFEROL [Concomitant]
     Active Substance: CHOLECALCIFEROL
     Indication: Vitamin D deficiency
     Dosage: 1 DOSAGE FORM, MONTHLY
     Route: 048
     Dates: start: 20211103

REACTIONS (2)
  - Rectal haemorrhage [Recovered/Resolved]
  - Anorectal varices [Not Recovered/Not Resolved]

NARRATIVE: CASE EVENT DATE: 20210301
